FAERS Safety Report 20349293 (Version 2)
Quarter: 2022Q1

REPORT INFORMATION
  Report Type: Spontaneous
  Country: FR (occurrence: FR)
  Receive Date: 20220119
  Receipt Date: 20220127
  Transmission Date: 20220424
  Serious: Yes (Hospitalization)
  Sender: FDA-Public Use
  Company Number: None

PATIENT
  Age: 35 Year
  Sex: Female

DRUGS (11)
  1. BROMAZEPAM [Suspect]
     Active Substance: BROMAZEPAM
     Indication: Product used for unknown indication
     Dosage: UNK
     Route: 048
     Dates: start: 2021
  2. ZOLPIDEM [Suspect]
     Active Substance: ZOLPIDEM TARTRATE
     Indication: Product used for unknown indication
     Dosage: UNK (1/2 PLAQUETTE PAR JOUR)
     Route: 048
     Dates: start: 2021
  3. ZOLPIDEM [Suspect]
     Active Substance: ZOLPIDEM TARTRATE
     Dosage: 10 MG, QD (BEDTIME)
     Route: 065
     Dates: start: 2021
  4. ZOLPIDEM [Suspect]
     Active Substance: ZOLPIDEM TARTRATE
     Dosage: UNK (1/2 BLISTER PACK OF ZOLPIDEM PER DAY)
     Route: 048
     Dates: start: 202111
  5. LYRICA [Suspect]
     Active Substance: PREGABALIN
     Indication: Product used for unknown indication
     Dosage: UNK (900-1200 MG PAR PRISE DEPUIS //11/2022TENTATIVE DE SUICIDE 3 PLAQUETTE EN UNE SEULE PRISE)
     Route: 048
     Dates: start: 202111
  6. LYRICA [Suspect]
     Active Substance: PREGABALIN
     Dosage: 1200 MG (900-1200 MG PER DOSE)
     Route: 065
     Dates: start: 202111
  7. LYRICA [Suspect]
     Active Substance: PREGABALIN
     Dosage: 150 MG, QD
     Route: 065
     Dates: start: 20211231
  8. BROMAZEPAM [Suspect]
     Active Substance: BROMAZEPAM
     Indication: Product used for unknown indication
     Dosage: UNK (1/2 FLACON PAR JOUR)
     Route: 048
     Dates: start: 2021
  9. BROMAZEPAM [Suspect]
     Active Substance: BROMAZEPAM
     Dosage: 6 MG, TID
     Route: 048
  10. BROMAZEPAM [Suspect]
     Active Substance: BROMAZEPAM
     Dosage: UNK (1/2 BOTTLE OF LEXOMIL PER DAY)
     Route: 065
     Dates: start: 202111
  11. COCAINE [Concomitant]
     Active Substance: COCAINE
     Indication: Product used for unknown indication
     Dosage: 0.5 G (ABOUT 3/WEEK)
     Route: 065
     Dates: start: 2019, end: 2020

REACTIONS (4)
  - Anxiety [Recovered/Resolved]
  - Suicidal ideation [Recovering/Resolving]
  - Suicide attempt [Recovering/Resolving]
  - Intentional product misuse [Unknown]

NARRATIVE: CASE EVENT DATE: 20211101
